FAERS Safety Report 4976720-7 (Version None)
Quarter: 2006Q2

REPORT INFORMATION
  Report Type: 
  Country: None (occurrence: None)
  Receive Date: 20060419
  Receipt Date: 20060330
  Transmission Date: 20061013
  Serious: Yes (Other)
  Sender: FDA-Public Use
  Company Number: PHBS2006JP04969

PATIENT

DRUGS (1)
  1. ZADITEN [Suspect]

REACTIONS (1)
  - NO ADVERSE DRUG EFFECT [None]
